FAERS Safety Report 13786925 (Version 1)
Quarter: 2017Q3

REPORT INFORMATION
  Report Type: Spontaneous
  Country: US (occurrence: US)
  Receive Date: 20170725
  Receipt Date: 20170725
  Transmission Date: 20171127
  Serious: No
  Sender: FDA-Public Use
  Company Number: US-TEVA-731616ACC

PATIENT
  Sex: Male

DRUGS (2)
  1. BACLOFEN. [Suspect]
     Active Substance: BACLOFEN
     Dosage: 5 MG EVERY TWO OR THREE DAYS
     Route: 048
  2. AMPYRA [Suspect]
     Active Substance: DALFAMPRIDINE
     Indication: GAIT DISTURBANCE
     Dosage: 20 MILLIGRAM DAILY;
     Route: 048

REACTIONS (4)
  - Insomnia [Unknown]
  - Heart rate increased [Unknown]
  - Product use in unapproved indication [Unknown]
  - Headache [Unknown]
